FAERS Safety Report 9358815 (Version 1)
Quarter: 2013Q2

REPORT INFORMATION
  Report Type: Spontaneous
  Country: US (occurrence: US)
  Receive Date: 20130620
  Receipt Date: 20130620
  Transmission Date: 20140414
  Serious: Yes (Death, Other)
  Sender: FDA-Public Use
  Company Number: US-TEVA-413107USA

PATIENT
  Age: 51 Year
  Sex: Male

DRUGS (4)
  1. CLONIDINE [Suspect]
     Indication: DRUG DETOXIFICATION
  2. PROPOFOL [Suspect]
     Indication: DRUG DETOXIFICATION
  3. SEVOFLURANE [Suspect]
     Indication: DRUG DETOXIFICATION
  4. NALOXONE [Suspect]
     Indication: DRUG DETOXIFICATION

REACTIONS (6)
  - Hypoxic-ischaemic encephalopathy [Fatal]
  - Ventricular fibrillation [Recovered/Resolved]
  - Hypokalaemia [Unknown]
  - Agitation [Unknown]
  - Hypertension [Unknown]
  - Tachycardia [Unknown]
